FAERS Safety Report 5234898-4 (Version None)
Quarter: 2007Q1

REPORT INFORMATION
  Report Type: 
  Country: None (occurrence: None)
  Receive Date: 20070209
  Receipt Date: 20070201
  Transmission Date: 20070707
  Serious: Yes (Death, Hospitalization, Other)
  Sender: FDA-Public Use
  Company Number: CA-PFIZER INC-2007008874

PATIENT
  Age: 58 Year
  Sex: Female

DRUGS (7)
  1. ATORVASTATIN CALCIUM [Suspect]
     Indication: DYSLIPIDAEMIA
     Dosage: DAILY DOSE:80MG
  2. CLOPIDOGREL [Interacting]
     Indication: PROPHYLAXIS
     Dosage: DAILY DOSE:75MG
  3. ASPIRIN 10GR TIMED DISINTEGRATION TAB [Concomitant]
  4. CYCLOSPORINE [Concomitant]
  5. PREDNISONE [Concomitant]
  6. AZATHIOPRINE [Concomitant]
  7. LISINOPRIL [Concomitant]

REACTIONS (5)
  - CORONARY ARTERY DISEASE [None]
  - DRUG INTERACTION [None]
  - MYOCARDIAL ISCHAEMIA [None]
  - RENAL FAILURE ACUTE [None]
  - RHABDOMYOLYSIS [None]
